FAERS Safety Report 8519090-X (Version None)
Quarter: 2012Q3

REPORT INFORMATION
  Report Type: 
  Country: None (occurrence: None)
  Receive Date: 20120709
  Receipt Date: 20120625
  Transmission Date: 20120928
  Serious: Yes (Hospitalization)
  Sender: FDA-Public Use
  Company Number: 2012-145

PATIENT
  Age: 61 Year
  Sex: Male
  Weight: 91 kg

DRUGS (12)
  1. ROXICODONE [Concomitant]
  2. TRAZDONE [Concomitant]
  3. NOVOLOG [Concomitant]
  4. NEURONTIN [Concomitant]
  5. AMITRIPTYLINE HYDROCHLORIDE [Concomitant]
  6. CLONIDINE [Suspect]
     Dosage: UNK UG, ONCE/HOUR, INTRATHECAL
     Route: 037
  7. SUFENTANIL CITRATE [Suspect]
     Dosage: UNK G, ONCE/HOUR, INTRATHECAL
     Route: 037
  8. ENALAPRIL MALEATE [Concomitant]
  9. ATENOLOL [Concomitant]
  10. LANTUS [Concomitant]
  11. PRIALT [Suspect]
     Indication: PAIN
     Dosage: 0.04-0.0625 UG, ONCE/HOUR, INTRATHECAL
     Route: 037
     Dates: start: 20111101, end: 20120601
  12. PRIALT [Suspect]
     Indication: BACK PAIN
     Dosage: 0.04-0.0625 UG, ONCE/HOUR, INTRATHECAL
     Route: 037
     Dates: start: 20111101, end: 20120601

REACTIONS (9)
  - FATIGUE [None]
  - FALL [None]
  - MENTAL STATUS CHANGES [None]
  - BACK PAIN [None]
  - PNEUMONIA [None]
  - ASTHENIA [None]
  - SEPSIS [None]
  - CONFUSIONAL STATE [None]
  - RENAL FAILURE ACUTE [None]
